FAERS Safety Report 25276517 (Version 1)
Quarter: 2025Q2

REPORT INFORMATION
  Report Type: Report from Study
  Country: AU (occurrence: AU)
  Receive Date: 20250507
  Receipt Date: 20250507
  Transmission Date: 20250716
  Serious: Yes (Other)
  Sender: TRAVERE THERAPEUTICS
  Company Number: AU-BEH-2025203133

PATIENT
  Age: 35 Year
  Sex: Male

DRUGS (1)
  1. FILSPARI [Suspect]
     Active Substance: SPARSENTAN
     Indication: IgA nephropathy
     Dosage: UNK UNK, QD
     Route: 048

REACTIONS (2)
  - Neuropathy peripheral [Unknown]
  - Limb discomfort [Unknown]
